FAERS Safety Report 15145552 (Version 1)
Quarter: 2018Q3

REPORT INFORMATION
  Report Type: Spontaneous
  Country: NO (occurrence: NO)
  Receive Date: 20180713
  Receipt Date: 20180713
  Transmission Date: 20181010
  Serious: Yes (Hospitalization)
  Sender: FDA-Public Use
  Company Number: NO-ALLERGAN-1835045US

PATIENT
  Age: 59 Year
  Sex: Male
  Weight: 85 kg

DRUGS (2)
  1. BOTOX [Suspect]
     Active Substance: ONABOTULINUMTOXINA
     Indication: DYSTONIA
     Dosage: UNK, SINGLE
     Route: 030
     Dates: start: 20180606, end: 20180606
  2. BOTOX [Suspect]
     Active Substance: ONABOTULINUMTOXINA
     Dosage: UNK, SINGLE
     Route: 030
     Dates: start: 2012, end: 2012

REACTIONS (3)
  - Diarrhoea [Not Recovered/Not Resolved]
  - Dysphagia [Not Recovered/Not Resolved]
  - Thrombosis [Not Recovered/Not Resolved]

NARRATIVE: CASE EVENT DATE: 20180613
